FAERS Safety Report 12443060 (Version 1)
Quarter: 2016Q2

REPORT INFORMATION
  Report Type: Spontaneous
  Country: US (occurrence: None)
  Receive Date: 20160606
  Receipt Date: 20160606
  Transmission Date: 20160815
  Serious: No
  Sender: FDA-Public Use
  Company Number: None

PATIENT
  Age: 62 Year
  Sex: Female
  Weight: 63.5 kg

DRUGS (10)
  1. CELECOXIB 200MG, 200 MG CANCER IN HIP BONES [Suspect]
     Active Substance: CELECOXIB
     Indication: PAIN
     Dosage: 30 CAPSULES ONCE A DAY
     Route: 048
     Dates: start: 20160404, end: 20160605
  2. OXYCODONE/ACETAMINOPHEN [Concomitant]
     Active Substance: ACETAMINOPHEN\OXYCODONE HYDROCHLORIDE
  3. CELECOXIB 200MG, 200 MG CANCER IN HIP BONES [Suspect]
     Active Substance: CELECOXIB
     Indication: ARTHRITIS
     Dosage: 30 CAPSULES ONCE A DAY
     Route: 048
     Dates: start: 20160404, end: 20160605
  4. CHEMO (TAXOL AND GEMZAR) [Concomitant]
  5. MULTI VITAMIN CHEWY [Concomitant]
  6. LORAZEPAM. [Concomitant]
     Active Substance: LORAZEPAM
  7. CELECOXIB 200MG, 200 MG CANCER IN HIP BONES [Suspect]
     Active Substance: CELECOXIB
     Indication: BONE CANCER
     Dosage: 30 CAPSULES ONCE A DAY
     Route: 048
     Dates: start: 20160404, end: 20160605
  8. LETROZOLE. [Concomitant]
     Active Substance: LETROZOLE
  9. VIACTIVE CHEWY [Concomitant]
  10. VITAMIN D [Concomitant]
     Active Substance: CHOLECALCIFEROL

REACTIONS (3)
  - Product size issue [None]
  - Product quality issue [None]
  - Drug ineffective [None]

NARRATIVE: CASE EVENT DATE: 20160604
